FAERS Safety Report 21142585 (Version 2)
Quarter: 2022Q3

REPORT INFORMATION
  Report Type: Spontaneous
  Country: AU (occurrence: AU)
  Receive Date: 20220728
  Receipt Date: 20220928
  Transmission Date: 20221027
  Serious: Yes (Other)
  Sender: FDA-Public Use
  Company Number: AU-PFIZER INC-PV202200016079

PATIENT
  Age: 50 Year
  Sex: Female
  Weight: 96 kg

DRUGS (14)
  1. CLOZAPINE [Suspect]
     Active Substance: CLOZAPINE
     Indication: Schizophrenia
     Dosage: UNK
     Dates: start: 20200225
  2. CLOZAPINE [Suspect]
     Active Substance: CLOZAPINE
     Dosage: 200 MG 1 TABLET BEFORE BED
  3. VENLAFAXINE HYDROCHLORIDE [Suspect]
     Active Substance: VENLAFAXINE HYDROCHLORIDE
     Indication: Anxiety
     Dosage: 75 MG 1 CAPSULE DAILY
     Route: 048
     Dates: start: 20210817
  4. VENLAFAXINE HYDROCHLORIDE [Suspect]
     Active Substance: VENLAFAXINE HYDROCHLORIDE
     Indication: Depression
  5. LYRICA [Suspect]
     Active Substance: PREGABALIN
     Dosage: 1 CAPSULE IN THE EVENING
  6. ATROPT [Concomitant]
     Dosage: 2 DROPS UNDER THE TONGUE AT NIGHT NON PACKED
  7. CRESTOR [Concomitant]
     Active Substance: ROSUVASTATIN CALCIUM
     Dosage: 1 TABLET IN THE EVENING
  8. DIPROSONE [Concomitant]
     Active Substance: BETAMETHASONE DIPROPIONATE
     Dosage: APPLY BD FOR UP TO 10 DAYS
  9. METFORMIN [Concomitant]
     Active Substance: METFORMIN HYDROCHLORIDE
     Dosage: 500MG MORNING 1G AT NIGHT
  10. MOVICOL [Concomitant]
     Active Substance: POLYETHYLENE GLYCOL 3350\POTASSIUM CHLORIDE\SODIUM BICARBONATE\SODIUM CHLORIDE
     Dosage: 2 SACHETS BEFORE BED AS DIRECTED PRN NON PACKED
  11. RISPERIDONE [Concomitant]
     Active Substance: RISPERIDONE
     Dosage: 1 TABLET IN THE MORNING
  12. VAGIFEM [Concomitant]
     Active Substance: ESTRADIOL
     Dosage: INSERT DEEP INTRAVAGINALLY WITH APPLICATOR, INITIALLY I PESSARY/DAY FOR 2 WEEKS
  13. VAGIFEM [Concomitant]
     Active Substance: ESTRADIOL
     Dosage: MAINTENANCE: 1 PESSARY TWICE WEEKLY, REASSESS AFTER 3-6 MTHS. NON PACKED
  14. VITAMIN D NOS [Concomitant]
     Active Substance: VITAMIN D NOS
     Dosage: ONCE A MONTH

REACTIONS (12)
  - Electrocardiogram QT prolonged [Not Recovered/Not Resolved]
  - Schizophrenia [Unknown]
  - Aortic valve incompetence [Unknown]
  - Mitral valve incompetence [Unknown]
  - Tricuspid valve incompetence [Unknown]
  - Pulmonary valve incompetence [Unknown]
  - Aortic arteriosclerosis [Unknown]
  - Bundle branch block right [Not Recovered/Not Resolved]
  - COVID-19 [Unknown]
  - Blood thyroid stimulating hormone increased [Unknown]
  - Mean cell haemoglobin increased [Unknown]
  - Monocyte count decreased [Unknown]

NARRATIVE: CASE EVENT DATE: 20220314
